FAERS Safety Report 9109011 (Version 1)
Quarter: 2013Q1

REPORT INFORMATION
  Report Type: Spontaneous
  Country: FR (occurrence: FR)
  Receive Date: 20130222
  Receipt Date: 20130222
  Transmission Date: 20140127
  Serious: Yes (Hospitalization)
  Sender: FDA-Public Use
  Company Number: FR-SANOFI-AVENTIS-2013SA002187

PATIENT
  Age: 42 Year
  Sex: Female

DRUGS (12)
  1. NASACORT [Suspect]
     Indication: PRODUCT USED FOR UNKNOWN INDICATION
     Route: 045
     Dates: start: 20121026, end: 20121029
  2. PARACETAMOL [Suspect]
     Indication: PRODUCT USED FOR UNKNOWN INDICATION
     Route: 048
     Dates: start: 20121028, end: 20121028
  3. CODEINE [Suspect]
     Indication: PRODUCT USED FOR UNKNOWN INDICATION
     Route: 048
     Dates: start: 20121028, end: 20121028
  4. AMOXICILLIN/CLAVULANIC ACID [Suspect]
     Indication: EAR INFECTION
     Route: 048
     Dates: start: 20121026, end: 20121029
  5. ALL OTHER THERAPEUTIC PRODUCTS [Suspect]
     Indication: PRODUCT USED FOR UNKNOWN INDICATION
     Route: 048
     Dates: start: 20121026, end: 20121029
  6. FENTICONAZOLE NITRATE [Suspect]
     Indication: PRODUCT USED FOR UNKNOWN INDICATION
     Route: 067
     Dates: start: 20121026, end: 20121026
  7. RANIPLEX [Concomitant]
     Dosage: STRENGTH: 150 MG
     Route: 048
  8. CEFPODOXIME ZENTIVA [Concomitant]
     Indication: EAR INFECTION
     Route: 048
     Dates: start: 20121022, end: 20121026
  9. OFLOCET [Concomitant]
     Indication: EAR INFECTION
     Dosage: STRENGTH: 1.5 MG/0.5 ML OTIC SOLUTION UNIDOSE?DOSE:  2 TIMES DAILY
     Dates: start: 20121022
  10. ATURGYL [Concomitant]
     Route: 045
     Dates: start: 20121022, end: 20121026
  11. GAVISCON [Concomitant]
     Dosage: DOSE: 3 TIMES DAILY
     Route: 048
  12. BENAZEPRIL [Concomitant]
     Route: 048

REACTIONS (5)
  - Hepatocellular injury [Recovering/Resolving]
  - Gamma-glutamyltransferase increased [Recovering/Resolving]
  - Aspartate aminotransferase increased [Recovering/Resolving]
  - Alanine aminotransferase increased [Recovering/Resolving]
  - Abdominal pain [Recovering/Resolving]
